FAERS Safety Report 8130497-5 (Version None)
Quarter: 2012Q1

REPORT INFORMATION
  Report Type: 
  Country: None (occurrence: None)
  Receive Date: 20120210
  Receipt Date: 20120207
  Transmission Date: 20120608
  Serious: No
  Sender: FDA-Public Use
  Company Number: US-BAYER-2012-013562

PATIENT
  Sex: Male
  Weight: 66 kg

DRUGS (2)
  1. ALEVE (CAPLET) [Suspect]
     Dosage: UNK
  2. ALEVE (CAPLET) [Suspect]
     Indication: ARTHRITIS
     Dosage: 6-8 ALEVE PER DAY
     Route: 048
     Dates: start: 20110807

REACTIONS (1)
  - ABDOMINAL PAIN UPPER [None]
